FAERS Safety Report 7503776-X (Version None)
Quarter: 2011Q2

REPORT INFORMATION
  Report Type: 
  Country: None (occurrence: None)
  Receive Date: 20110524
  Receipt Date: 20110524
  Transmission Date: 20111010
  Serious: Yes (Hospitalization)
  Sender: FDA-Public Use
  Company Number: None

PATIENT
  Age: 4 Year
  Sex: Male
  Weight: 20.4119 kg

DRUGS (3)
  1. SINGULAIR [Suspect]
     Indication: SEASONAL ALLERGY
     Dosage: 5MG CHEWABLE TABLET DAILY PO
     Route: 048
     Dates: start: 20080429, end: 20080918
  2. SINGULAIR [Suspect]
     Indication: SECRETION DISCHARGE
     Dosage: 5MG CHEWABLE TABLET DAILY PO
     Route: 048
     Dates: start: 20080429, end: 20080918
  3. SINGULAIR [Suspect]
     Indication: NASAL CONGESTION
     Dosage: 5MG CHEWABLE TABLET DAILY PO
     Route: 048
     Dates: start: 20080429, end: 20080918

REACTIONS (14)
  - PERSONALITY CHANGE [None]
  - ANGER [None]
  - TIC [None]
  - AGGRESSION [None]
  - ANXIETY [None]
  - FEAR [None]
  - EXCESSIVE EYE BLINKING [None]
  - OBSESSIVE-COMPULSIVE DISORDER [None]
  - STRESS [None]
  - DEPRESSED MOOD [None]
  - SCREAMING [None]
  - MIDDLE INSOMNIA [None]
  - ASTHMA [None]
  - MENTAL DISORDER [None]
